FAERS Safety Report 10680988 (Version 2)
Quarter: 2015Q1

REPORT INFORMATION
  Report Type: Report from Study
  Country: IN (occurrence: IN)
  Receive Date: 20141229
  Receipt Date: 20150105
  Transmission Date: 20150720
  Serious: No
  Sender: FDA-Public Use
  Company Number: IN-BAYER-2014-187402

PATIENT
  Age: 57 Year
  Sex: Male

DRUGS (5)
  1. NEXAVAR [Suspect]
     Active Substance: SORAFENIB
     Indication: HEPATOCELLULAR CARCINOMA
     Dosage: 400 MG, QD
     Dates: start: 2014
  2. NEUROBION [PYRIDOXINE HYDROCHLORIDE,THIAMINE MONONITRATE] [Concomitant]
     Dosage: 2 TIMES/DAY
  3. TAUROURSODESOXYCHOLIC ACID [Concomitant]
     Dosage: UNK
  4. ESOMEPRAZOLE MAGNESIUM. [Concomitant]
     Active Substance: ESOMEPRAZOLE MAGNESIUM
     Dosage: UNK
  5. SHELCAL [Concomitant]
     Dosage: UNK

REACTIONS (3)
  - Gastric disorder [Not Recovered/Not Resolved]
  - Furuncle [Recovering/Resolving]
  - Skin fissures [Not Recovered/Not Resolved]

NARRATIVE: CASE EVENT DATE: 201408
